FAERS Safety Report 4524527-7 (Version None)
Quarter: 2005Q1

REPORT INFORMATION
  Report Type: 
  Country: None (occurrence: None)
  Receive Date: 20041117
  Receipt Date: 20040517
  Transmission Date: 20050727
  Serious: Yes (Hospitalization)
  Sender: FDA-Public Use
  Company Number: US-JNJFOC-20031204603

PATIENT
  Age: 74 Year
  Sex: Female
  Weight: 68.0396 kg

DRUGS (5)
  1. LEVAQUIN [Suspect]
     Indication: BRONCHITIS ACUTE
     Dosage: 500 MG
     Dates: start: 20031105, end: 20031118
  2. ADVAIR (SERETIDE MITE) [Concomitant]
  3. FOSAMAX [Concomitant]
  4. CELEBREX [Concomitant]
  5. PREMARIN [Concomitant]

REACTIONS (4)
  - ANXIETY [None]
  - ARTHRALGIA [None]
  - INSOMNIA [None]
  - TENDON RUPTURE [None]
